FAERS Safety Report 24878786 (Version 3)
Quarter: 2025Q1

REPORT INFORMATION
  Report Type: Report from Study
  Country: US (occurrence: US)
  Receive Date: 20250123
  Receipt Date: 20250317
  Transmission Date: 20250409
  Serious: Yes (Other)
  Sender: SUNOVION
  Company Number: US-SUMITOMO PHARMA SWITZERLAND GMBH-2025SPA000341

PATIENT

DRUGS (2)
  1. ORGOVYX [Suspect]
     Active Substance: RELUGOLIX
     Indication: Prostate cancer
     Dosage: 120 MG, QD
     Route: 048
     Dates: start: 202501
  2. FIRMAGON [Suspect]
     Active Substance: DEGARELIX ACETATE
     Route: 065

REACTIONS (6)
  - Crohn^s disease [Unknown]
  - Injection site reaction [Unknown]
  - Hot flush [Recovering/Resolving]
  - Diarrhoea [Unknown]
  - Bone pain [Unknown]
  - Incorrect dose administered [Unknown]
